FAERS Safety Report 6392665-2 (Version None)
Quarter: 2009Q4

REPORT INFORMATION
  Report Type: 
  Country: None (occurrence: None)
  Receive Date: 20091007
  Receipt Date: 20090723
  Transmission Date: 20100525
  Serious: No
  Sender: FDA-Public Use
  Company Number: US-ALLERGAN-0910309US

PATIENT
  Age: 68 Year
  Sex: Female

DRUGS (4)
  1. LATISSE [Suspect]
     Indication: HYPOTRICHOSIS
     Dosage: 1 GTT, QHS
     Route: 061
  2. PREMARIN [Concomitant]
  3. VITAMIN [Concomitant]
  4. GARLIC [Concomitant]

REACTIONS (4)
  - ERYTHEMA OF EYELID [None]
  - EYE IRRITATION [None]
  - EYELID IRRITATION [None]
  - OCULAR HYPERAEMIA [None]
